FAERS Safety Report 18381752 (Version 1)
Quarter: 2020Q4

REPORT INFORMATION
  Report Type: Spontaneous
  Country: US (occurrence: US)
  Receive Date: 20201014
  Receipt Date: 20201014
  Transmission Date: 20210114
  Serious: No
  Sender: FDA-Public Use
  Company Number: US-009507513-2010USA002221

PATIENT
  Age: 12 Year

DRUGS (1)
  1. ASMANEX [Suspect]
     Active Substance: MOMETASONE FUROATE
     Dosage: 2 PUFFS, FREQUENCY: UNKNOWN
     Dates: start: 202009, end: 202009

REACTIONS (5)
  - Incorrect dose administered [Unknown]
  - Device malfunction [Unknown]
  - Poor quality device used [Unknown]
  - Device breakage [Unknown]
  - Circumstance or information capable of leading to medication error [Unknown]

NARRATIVE: CASE EVENT DATE: 202009
